FAERS Safety Report 10145702 (Version 1)
Quarter: 2014Q2

REPORT INFORMATION
  Report Type: Spontaneous
  Country: None (occurrence: US)
  Receive Date: 20140501
  Receipt Date: 20140501
  Transmission Date: 20141212
  Serious: No
  Sender: FDA-Public Use
  Company Number: US-ABBVIE-13P-163-1136919-00

PATIENT
  Age: 17 Year
  Sex: Female
  Weight: 51 kg

DRUGS (6)
  1. CREON [Suspect]
     Indication: PRODUCT USED FOR UNKNOWN INDICATION
     Dosage: 7 CAPSULES WITH MEALS, 5 CAPSULES WITH SNACKS
     Dates: end: 201307
  2. CREON [Suspect]
     Dosage: 4 CAPSULES WITH MEALS, 2-4 CAPSULES WITH SNACKS
     Dates: start: 201307, end: 201307
  3. CREON [Suspect]
     Dosage: 7 CAPSULES WITH MEALS, 5 CAPSULES WITH SNACKS
     Dates: start: 201307
  4. VITAMINS NOS [Concomitant]
     Indication: PRODUCT USED FOR UNKNOWN INDICATION
  5. PROAIR [Concomitant]
     Indication: PRODUCT USED FOR UNKNOWN INDICATION
  6. PULMOZYME [Concomitant]
     Indication: PRODUCT USED FOR UNKNOWN INDICATION

REACTIONS (3)
  - Abdominal pain [Recovered/Resolved]
  - Frequent bowel movements [Recovered/Resolved]
  - Abnormal faeces [Recovered/Resolved]
